FAERS Safety Report 9934356 (Version 1)
Quarter: 2014Q1

REPORT INFORMATION
  Report Type: Spontaneous
  Country: US (occurrence: US)
  Receive Date: 20140228
  Receipt Date: 20140228
  Transmission Date: 20141002
  Serious: Yes (Other)
  Sender: FDA-Public Use
  Company Number: US-ABBVIE-14P-163-1189923-00

PATIENT
  Sex: Male

DRUGS (4)
  1. ANDROGEL PUMP [Suspect]
     Indication: BLOOD TESTOSTERONE DECREASED
     Dosage: UNKNOWN DOSE
     Route: 061
  2. ANDROGEL [Suspect]
     Indication: BLOOD TESTOSTERONE DECREASED
     Route: 061
     Dates: end: 2012
  3. TESTOSTERONE [Suspect]
     Indication: BLOOD TESTOSTERONE DECREASED
     Route: 050
     Dates: end: 2012
  4. TESTOSTERONE [Suspect]
     Route: 050
     Dates: start: 2013

REACTIONS (1)
  - Prostate cancer [Recovered/Resolved]
